FAERS Safety Report 11574436 (Version 1)
Quarter: 2015Q3

REPORT INFORMATION
  Report Type: Spontaneous
  Country: US (occurrence: US)
  Receive Date: 20150930
  Receipt Date: 20150930
  Transmission Date: 20151125
  Serious: Yes (Other)
  Sender: FDA-Public Use
  Company Number: US-THE MEDICINES COMPANY-US-MDCO-15-00208

PATIENT
  Sex: Female

DRUGS (2)
  1. CLEVIPREX [Suspect]
     Active Substance: CLEVIDIPINE
     Indication: HYPERTENSION
     Dosage: NOT REPORTED
  2. BLOOD TRANSFUSION [Concomitant]
     Active Substance: WHOLE BLOOD
     Indication: AORTIC VALVE REPLACEMENT
     Dosage: NOT REPORTED

REACTIONS (1)
  - Anaphylactic reaction [Recovered/Resolved]
